FAERS Safety Report 8054832-1 (Version None)
Quarter: 2012Q1

REPORT INFORMATION
  Report Type: 
  Country: None (occurrence: None)
  Receive Date: 20120119
  Receipt Date: 20120112
  Transmission Date: 20120608
  Serious: Yes (Hospitalization)
  Sender: FDA-Public Use
  Company Number: KR-US-EMD SERONO, INC.-7106584

PATIENT
  Sex: Female
  Weight: 28 kg

DRUGS (5)
  1. UNSPECIFIED ANTI-SEIZURE DRUG [Concomitant]
     Dates: end: 20110801
  2. SAIZEN [Suspect]
     Indication: GROWTH HORMONE DEFICIENCY
     Route: 058
     Dates: start: 20110825, end: 20111107
  3. UNSPECIFIED ANTI-SEIZURE DRUG [Suspect]
     Dates: start: 20111101
  4. UNSPECIFIED ANTI-SEIZURE DRUG [Suspect]
     Indication: CONVULSION
     Dosage: DECREASED
     Dates: start: 20110801, end: 20111101
  5. SAIZEN [Suspect]
     Dates: start: 20111115

REACTIONS (1)
  - CONVULSION [None]
